FAERS Safety Report 8158523-8 (Version None)
Quarter: 2012Q1

REPORT INFORMATION
  Report Type: 
  Country: None (occurrence: None)
  Receive Date: 20120223
  Receipt Date: 20120221
  Transmission Date: 20120608
  Serious: No
  Sender: FDA-Public Use
  Company Number: US-PFIZER INC-2012047006

PATIENT
  Sex: Female
  Weight: 62.1 kg

DRUGS (2)
  1. CHANTIX [Suspect]
     Indication: SMOKING CESSATION THERAPY
     Dosage: 0.5 MG, DAILY
     Dates: start: 20090701, end: 20090701
  2. CHANTIX [Suspect]
     Dosage: 0.5 MG, UNK
     Dates: start: 20090701, end: 20090701

REACTIONS (3)
  - ABNORMAL DREAMS [None]
  - WEIGHT DECREASED [None]
  - EMOTIONAL DISORDER [None]
